FAERS Safety Report 4999469-3 (Version None)
Quarter: 2006Q2

REPORT INFORMATION
  Report Type: 
  Country: None (occurrence: None)
  Receive Date: 20060510
  Receipt Date: 20060510
  Transmission Date: 20061013
  Serious: Yes (Life-Threatening, Hospitalization)
  Sender: FDA-Public Use
  Company Number: None

PATIENT
  Age: 55 Year
  Sex: Female

DRUGS (7)
  1. ENALAPRIL MALEATE [Suspect]
  2. TRIAMTERENE AND HYDROCHLOROTHIAZIDE [Concomitant]
  3. NORTRIPTYLINE HCL [Concomitant]
  4. CONJUGATED ESTROGENS [Concomitant]
  5. OMEPRAZOLE [Concomitant]
  6. QUETIAPINE FUMARATE [Concomitant]
  7. TRAZODONE HCL [Concomitant]

REACTIONS (1)
  - SWOLLEN TONGUE [None]
